FAERS Safety Report 17111554 (Version 1)
Quarter: 2019Q4

REPORT INFORMATION
  Report Type: Report from Study
  Country: TW (occurrence: TW)
  Receive Date: 20191204
  Receipt Date: 20191204
  Transmission Date: 20200122
  Serious: Yes (Hospitalization, Other)
  Sender: FDA-Public Use
  Company Number: TW-ROCHE-2333360

PATIENT
  Age: 72 Year
  Sex: Female

DRUGS (16)
  1. AVASTIN [Suspect]
     Active Substance: BEVACIZUMAB
     Indication: OVARIAN CANCER
     Route: 041
     Dates: start: 20180730
  2. HYCAMTIN [Concomitant]
     Active Substance: TOPOTECAN HYDROCHLORIDE
     Indication: OVARIAN CANCER
     Dosage: DAY 1 AND DAY 5
     Route: 065
     Dates: start: 20190419, end: 20190423
  3. ATIVAN [Concomitant]
     Active Substance: LORAZEPAM
     Dosage: 30 MINUTES BEFORE CHEMOTHERAPY
     Route: 048
  4. KENTAMIN [Concomitant]
     Dosage: AFTER FOOD
     Route: 048
     Dates: start: 20190910
  5. INTAXEL [PACLITAXEL] [Suspect]
     Active Substance: PACLITAXEL
     Indication: OVARIAN CANCER
     Dosage: OVER 180 MINUTES
     Route: 042
     Dates: start: 20180730
  6. CARBOPLATIN. [Suspect]
     Active Substance: CARBOPLATIN
     Indication: OVARIAN CANCER
     Dosage: OVER 180 MINUTS
     Route: 041
     Dates: start: 20180730, end: 20190909
  7. CELEBREX [Concomitant]
     Active Substance: CELECOXIB
     Route: 048
     Dates: start: 20191112
  8. RINDERON [BETAMETHASONE] [Concomitant]
     Active Substance: BETAMETHASONE
     Dosage: 30 MINUTES BEFORE CHEMOTHERAPY
     Route: 041
  9. RIVOTRIL [Concomitant]
     Active Substance: CLONAZEPAM
     Dosage: AT NIGHT
     Route: 048
     Dates: start: 20191022
  10. KEMOPLAT [Suspect]
     Active Substance: CISPLATIN
     Indication: OVARIAN CANCER
     Dosage: OVER 120 MINUTES
     Route: 041
     Dates: start: 20190930
  11. GRANTRON [Concomitant]
     Dosage: IMMEDIATELY
     Route: 041
  12. DIPHENHYDRAMINE. [Concomitant]
     Active Substance: DIPHENHYDRAMINE
     Dosage: IMMEDIATELY
     Route: 041
  13. STILNOX [Concomitant]
     Active Substance: ZOLPIDEM TARTRATE
     Dosage: AT NIGHT
     Route: 048
     Dates: start: 20190910
  14. LIPODOX [Concomitant]
     Active Substance: DOXORUBICIN HYDROCHLORIDE
     Indication: OVARIAN CANCER
  15. CONCOR [Concomitant]
     Active Substance: BISOPROLOL FUMARATE
     Route: 048
     Dates: start: 20190910
  16. THROUGH [Concomitant]
     Route: 048
     Dates: start: 20190910

REACTIONS (6)
  - Decreased appetite [Recovered/Resolved]
  - Pyrexia [Recovered/Resolved]
  - Anaemia [Not Recovered/Not Resolved]
  - Abdominal infection [Unknown]
  - Hepatitis B [Recovering/Resolving]
  - Weight decreased [Recovered/Resolved]

NARRATIVE: CASE EVENT DATE: 20190513
